FAERS Safety Report 16562070 (Version 1)
Quarter: 2019Q3

REPORT INFORMATION
  Report Type: Report from Study
  Country: GB (occurrence: GB)
  Receive Date: 20190711
  Receipt Date: 20190711
  Transmission Date: 20191004
  Serious: Yes (Hospitalization)
  Sender: FDA-Public Use
  Company Number: GB-JNJFOC-20190712183

PATIENT
  Age: 51 Year
  Sex: Male
  Weight: 90 kg

DRUGS (11)
  1. STELARA [Suspect]
     Active Substance: USTEKINUMAB
     Indication: PSORIASIS
     Route: 058
     Dates: start: 20130722
  2. COCOIS [Concomitant]
     Route: 065
     Dates: start: 20101108
  3. HYDROMOL                           /00906601/ [Concomitant]
     Route: 065
     Dates: start: 20101108
  4. ETRIVEX [Concomitant]
     Active Substance: CLOBETASOL PROPIONATE
     Route: 065
     Dates: start: 20101108
  5. GLICLAZIDE [Concomitant]
     Active Substance: GLICLAZIDE
     Route: 065
     Dates: start: 20141001
  6. METFORMIN [Concomitant]
     Active Substance: METFORMIN HYDROCHLORIDE
     Route: 065
     Dates: start: 20070302
  7. DIPROBASE                          /01132701/ [Concomitant]
     Route: 065
     Dates: start: 20080816
  8. EXOREX [Concomitant]
     Active Substance: COAL TAR
     Route: 065
  9. DIPROSALIC [Concomitant]
     Active Substance: BETAMETHASONE DIPROPIONATE
     Route: 065
  10. SIMVASTATIN. [Concomitant]
     Active Substance: SIMVASTATIN
     Route: 065
     Dates: start: 20070302
  11. ELOCON [Concomitant]
     Active Substance: MOMETASONE FUROATE
     Route: 065
     Dates: start: 20101108

REACTIONS (2)
  - Viral infection [Recovered/Resolved]
  - Gastroenteritis [Recovered/Resolved]

NARRATIVE: CASE EVENT DATE: 20181226
